FAERS Safety Report 9286470 (Version 1)
Quarter: 2013Q2

REPORT INFORMATION
  Report Type: Spontaneous
  Country: CO (occurrence: None)
  Receive Date: 20130508
  Receipt Date: 20130508
  Transmission Date: 20140414
  Serious: Yes (Other)
  Sender: FDA-Public Use
  Company Number: IPC201304-000180

PATIENT
  Age: 76 Year
  Sex: Male

DRUGS (1)
  1. FUROSEMIDE [Suspect]
     Indication: OEDEMA PERIPHERAL

REACTIONS (3)
  - Toxic epidermal necrolysis [None]
  - Eosinophilia [None]
  - Staphylococcal bacteraemia [None]
